FAERS Safety Report 9245219 (Version 1)
Quarter: 2013Q1

REPORT INFORMATION
  Report Type: Spontaneous
  Country: US (occurrence: None)
  Receive Date: 20121123
  Receipt Date: 20121123
  Transmission Date: 20140127
  Serious: No
  Sender: FDA-Public Use
  Company Number: 361050

PATIENT
  Age: 46 Year
  Sex: Female

DRUGS (3)
  1. VICTOZA [Suspect]
     Indication: TYPE 2 DIABETES MELLITUS
     Route: 058
  2. METFORMIN [Concomitant]
  3. TRAJENTA (LINAGLIPTIN) [Concomitant]

REACTIONS (4)
  - Food craving [None]
  - Weight decreased [None]
  - Decreased appetite [None]
  - Blood glucose decreased [None]
